FAERS Safety Report 5490628-2 (Version None)
Quarter: 2007Q4

REPORT INFORMATION
  Report Type: 
  Country: None (occurrence: None)
  Receive Date: 20071019
  Receipt Date: 20070827
  Transmission Date: 20080405
  Serious: Yes (Other)
  Sender: FDA-Public Use
  Company Number: US-PURDUE-USA_2007_0029035

PATIENT
  Sex: Male

DRUGS (1)
  1. OXYCONTIN [Suspect]
     Dosage: 40 MG, BID
     Dates: end: 20010301

REACTIONS (8)
  - ANXIETY [None]
  - DEPRESSION [None]
  - DRUG DEPENDENCE [None]
  - MIGRAINE [None]
  - MOOD SWINGS [None]
  - MYOCARDIAL INFARCTION [None]
  - NERVOUSNESS [None]
  - TREMOR [None]
